FAERS Safety Report 7308617-1 (Version None)
Quarter: 2011Q1

REPORT INFORMATION
  Report Type: 
  Country: None (occurrence: None)
  Receive Date: 20110223
  Receipt Date: 20100820
  Transmission Date: 20110831
  Serious: Yes (Death, Life-Threatening, Hospitalization, Other)
  Sender: FDA-Public Use
  Company Number: FR-MERCK-1008USA03769

PATIENT
  Age: 53 Year
  Sex: Male

DRUGS (11)
  1. EFFEXOR [Concomitant]
     Route: 065
     Dates: start: 20050101
  2. NORVIR [Suspect]
     Indication: HIV INFECTION
     Route: 048
     Dates: start: 20040101
  3. ATARAX [Concomitant]
     Route: 065
     Dates: start: 20050101
  4. ISENTRESS [Suspect]
     Indication: HIV INFECTION
     Route: 048
     Dates: start: 20100129, end: 20100304
  5. VIDEX [Suspect]
     Indication: HIV INFECTION
     Route: 065
     Dates: start: 20040101, end: 20100129
  6. RISPERDAL [Concomitant]
     Route: 065
     Dates: start: 20050101
  7. REVATIO [Suspect]
     Indication: PULMONARY HYPERTENSION
     Route: 048
     Dates: start: 20090701
  8. GLUCOVANCE [Suspect]
     Indication: TYPE 2 DIABETES MELLITUS
     Route: 048
     Dates: start: 20050101
  9. SUSTIVA [Suspect]
     Indication: HIV INFECTION
     Route: 048
     Dates: start: 20040101
  10. MEPRONIZINE [Concomitant]
     Route: 065
     Dates: start: 20050101
  11. TELZIR [Suspect]
     Indication: HIV INFECTION
     Route: 048
     Dates: start: 20040101

REACTIONS (7)
  - HEPATIC FAILURE [None]
  - INSOMNIA [None]
  - METABOLIC ACIDOSIS [None]
  - DYSPNOEA [None]
  - HYPERLACTACIDAEMIA [None]
  - VENTRICULAR ARRHYTHMIA [None]
  - SHOCK [None]
